FAERS Safety Report 12853680 (Version 2)
Quarter: 2017Q2

REPORT INFORMATION
  Report Type: Spontaneous
  Country: JP (occurrence: JP)
  Receive Date: 20161017
  Receipt Date: 20170619
  Transmission Date: 20170830
  Serious: Yes (Other)
  Sender: FDA-Public Use
  Company Number: JP-B.I. PHARMACEUTICALS,INC./RIDGEFIELD-2016-NB-000263

PATIENT
  Age: 8 Decade
  Sex: Female

DRUGS (1)
  1. MICARDIS [Suspect]
     Active Substance: TELMISARTAN
     Indication: HYPERTENSION
     Route: 048

REACTIONS (4)
  - Shock symptom [Unknown]
  - Hyperkalaemia [Recovered/Resolved]
  - Blood pressure decreased [Unknown]
  - Liver disorder [Unknown]
